FAERS Safety Report 6018633-8 (Version None)
Quarter: 2008Q4

REPORT INFORMATION
  Report Type: 
  Country: None (occurrence: None)
  Receive Date: 20081223
  Receipt Date: 20081211
  Transmission Date: 20090506
  Serious: Yes (Hospitalization)
  Sender: FDA-Public Use
  Company Number: GB-PFIZER INC-2008155450

PATIENT

DRUGS (3)
  1. BLINDED *PLACEBO [Suspect]
     Dosage: UNK
     Dates: start: 20080408
  2. CELECOXIB [Suspect]
     Dosage: UNK
     Dates: start: 20080408
  3. OMEPRAZOLE [Concomitant]
     Route: 048

REACTIONS (3)
  - ABDOMINAL PAIN [None]
  - CHOLECYSTITIS ACUTE [None]
  - LIVER FUNCTION TEST ABNORMAL [None]
